FAERS Safety Report 21698663 (Version 1)
Quarter: 2022Q4

REPORT INFORMATION
  Report Type: Spontaneous
  Country: ES (occurrence: ES)
  Receive Date: 20221208
  Receipt Date: 20221208
  Transmission Date: 20230112
  Serious: Yes (Hospitalization)
  Sender: FDA-Public Use
  Company Number: ES-TEVA-2022-ES-2833235

PATIENT
  Age: 62 Year
  Sex: Male

DRUGS (8)
  1. TACROLIMUS [Suspect]
     Active Substance: TACROLIMUS
     Indication: Immunosuppressant drug therapy
     Route: 065
  2. FLUCONAZOLE [Suspect]
     Active Substance: FLUCONAZOLE
     Indication: Cryptococcosis
     Route: 065
  3. PREDNISONE [Suspect]
     Active Substance: PREDNISONE
     Indication: Immunosuppressant drug therapy
     Route: 065
  4. ISAVUCONAZOLE [Suspect]
     Active Substance: ISAVUCONAZOLE
     Indication: Cryptococcosis
     Route: 065
  5. DEXAMETHASONE [Suspect]
     Active Substance: DEXAMETHASONE
     Indication: COVID-19 pneumonia
     Dosage: 6 MILLIGRAM DAILY; DAILY
     Route: 042
  6. CEFTRIAXONE [Concomitant]
     Active Substance: CEFTRIAXONE
     Indication: Evidence based treatment
     Dosage: 4 GRAM DAILY;
     Route: 065
  7. AZITHROMYCIN [Concomitant]
     Active Substance: AZITHROMYCIN
     Indication: Evidence based treatment
     Dosage: 2000 MILLIGRAM DAILY;
     Route: 065
  8. INSULIN NOS [Concomitant]
     Active Substance: INSULIN NOS
     Indication: Type 2 diabetes mellitus
     Route: 065

REACTIONS (3)
  - Mucormycosis [Recovered/Resolved]
  - COVID-19 pneumonia [Recovered/Resolved]
  - Respiratory failure [Recovered/Resolved]

NARRATIVE: CASE EVENT DATE: 20201101
